FAERS Safety Report 22519546 (Version 7)
Quarter: 2023Q4

REPORT INFORMATION
  Report Type: Spontaneous
  Country: US (occurrence: US)
  Receive Date: 20230605
  Receipt Date: 20231004
  Transmission Date: 20240110
  Serious: No
  Sender: FDA-Public Use
  Company Number: US-PFIZER INC-PV202300096429

PATIENT
  Age: 6 Year
  Sex: Female

DRUGS (1)
  1. GENOTROPIN [Suspect]
     Active Substance: SOMATROPIN
     Dosage: 0.4 MG, DAILY (0.4 MG/DAY 7 DAYS/WKS)

REACTIONS (3)
  - Wrong technique in device usage process [Unknown]
  - Device malfunction [Unknown]
  - Device issue [Unknown]
